FAERS Safety Report 5775319-2 (Version None)
Quarter: 2008Q2

REPORT INFORMATION
  Report Type: 
  Country: None (occurrence: None)
  Receive Date: 20080617
  Receipt Date: 20080610
  Transmission Date: 20081010
  Serious: Yes (Death)
  Sender: FDA-Public Use
  Company Number: US-AMGEN-QUU286119

PATIENT
  Age: 53 Year
  Sex: Male

DRUGS (3)
  1. ARANESP [Suspect]
     Indication: ANAEMIA OF MALIGNANT DISEASE
     Dates: start: 20070401, end: 20071101
  2. PROCRIT [Suspect]
     Indication: ANAEMIA OF MALIGNANT DISEASE
     Dates: start: 20080111, end: 20080111
  3. UNSPECIFIED ANTINEOPLASTIC AGENT [Concomitant]
     Dates: start: 20070401, end: 20070701

REACTIONS (1)
  - DEATH [None]
